FAERS Safety Report 9942167 (Version 2)
Quarter: 2014Q1

REPORT INFORMATION
  Report Type: Report from Study
  Country: US (occurrence: US)
  Receive Date: 20140303
  Receipt Date: 20140303
  Transmission Date: 20141002
  Serious: No
  Sender: FDA-Public Use
  Company Number: US-ABBVIE-12P-163-1027542-00

PATIENT
  Age: 61 Year
  Sex: Female

DRUGS (14)
  1. HUMIRA [Suspect]
     Indication: COLITIS ULCERATIVE
     Dates: start: 20121212, end: 20121212
  2. HUMIRA [Suspect]
     Dates: start: 20121213, end: 20121213
  3. HUMIRA [Suspect]
     Dates: start: 20130102, end: 20130102
  4. HUMIRA [Suspect]
     Dates: start: 20130117
  5. APRISO [Concomitant]
     Indication: COLITIS ULCERATIVE
     Dosage: 2 IN AM AND 2 IN PM
  6. PREDNISONE [Concomitant]
     Indication: COLITIS ULCERATIVE
     Dosage: TAPERING FROM 50MG, 20MG, 10MG, TO 5 MG DAILY
     Dates: start: 201210
  7. LOSARTAN HYDROCHLOROTHIAZIDE TEVA [Concomitant]
     Indication: HYPERTENSION
     Dosage: 100/25MG
  8. METOPROLOL [Concomitant]
     Indication: HYPERTENSION
  9. GLYBURIDE [Concomitant]
     Indication: DIABETES MELLITUS
  10. PRAVASTATIN [Concomitant]
     Indication: BLOOD CHOLESTEROL INCREASED
     Dosage: AT NIGHT
  11. ZOFRAN [Concomitant]
     Indication: NAUSEA
  12. OMEPRAZOLE [Concomitant]
     Indication: CHEST PAIN
  13. OMEPRAZOLE [Concomitant]
     Indication: DYSPEPSIA
  14. GLIMEPIRIDE [Concomitant]
     Indication: DIABETES MELLITUS

REACTIONS (10)
  - Asthenia [Not Recovered/Not Resolved]
  - Nasopharyngitis [Not Recovered/Not Resolved]
  - Pyrexia [Recovered/Resolved]
  - Decreased appetite [Not Recovered/Not Resolved]
  - Diarrhoea [Not Recovered/Not Resolved]
  - Cough [Not Recovered/Not Resolved]
  - Chest pain [Not Recovered/Not Resolved]
  - Dizziness [Not Recovered/Not Resolved]
  - Rhinorrhoea [Not Recovered/Not Resolved]
  - Nasal discharge discolouration [Unknown]
